FAERS Safety Report 6491226-4 (Version None)
Quarter: 2009Q4

REPORT INFORMATION
  Report Type: 
  Country: None (occurrence: None)
  Receive Date: 20091211
  Receipt Date: 20091127
  Transmission Date: 20100525
  Serious: Yes (Other)
  Sender: FDA-Public Use
  Company Number: GB-GENENTECH-290574

PATIENT
  Sex: Male

DRUGS (3)
  1. MABTHERA [Suspect]
     Indication: PALINDROMIC RHEUMATISM
     Dosage: UNK
     Route: 065
     Dates: start: 20090401, end: 20090401
  2. MABTHERA [Suspect]
     Indication: RHEUMATOID ARTHRITIS
  3. INHALER (TYPE UNKNOWN) [Concomitant]
     Indication: OBSTRUCTIVE AIRWAYS DISORDER

REACTIONS (2)
  - JOINT SWELLING [None]
  - TRAUMATIC LUNG INJURY [None]
